FAERS Safety Report 21732449 (Version 1)
Quarter: 2022Q4

REPORT INFORMATION
  Report Type: Spontaneous
  Country: US (occurrence: US)
  Receive Date: 20221215
  Receipt Date: 20221215
  Transmission Date: 20230113
  Serious: Yes (Hospitalization, Other)
  Sender: FDA-Public Use
  Company Number: US-SA-SAC20221214000579

PATIENT
  Age: 84 Year
  Sex: Female
  Weight: 87.54 kg

DRUGS (1)
  1. DUPIXENT [Suspect]
     Active Substance: DUPILUMAB
     Indication: Asthma
     Dosage: 300 MG, QOW
     Route: 058

REACTIONS (2)
  - Pneumonia [Not Recovered/Not Resolved]
  - Pericardial effusion [Not Recovered/Not Resolved]

NARRATIVE: CASE EVENT DATE: 20221101
